FAERS Safety Report 12626773 (Version 2)
Quarter: 2016Q3

REPORT INFORMATION
  Report Type: Report from Study
  Country: US (occurrence: US)
  Receive Date: 20160805
  Receipt Date: 20160811
  Transmission Date: 20161109
  Serious: Yes (Hospitalization, Other)
  Sender: FDA-Public Use
  Company Number: US-GILEAD-2016-0226425

PATIENT
  Age: 59 Year
  Sex: Female

DRUGS (1)
  1. SOFOSBUVIR [Suspect]
     Active Substance: SOFOSBUVIR
     Indication: HEPATITIS C
     Dosage: 400 MG, UNK
     Route: 048

REACTIONS (10)
  - Paralysis [Unknown]
  - Vomiting [Unknown]
  - Depression [Unknown]
  - Nausea [Unknown]
  - Drug dose omission [Unknown]
  - Cholelithiasis [Unknown]
  - Fatigue [Unknown]
  - Cervix haemorrhage uterine [Unknown]
  - Decreased interest [Unknown]
  - Pancreatitis [Unknown]
